FAERS Safety Report 5786076-8 (Version None)
Quarter: 2008Q2

REPORT INFORMATION
  Report Type: 
  Country: None (occurrence: None)
  Receive Date: 20080620
  Receipt Date: 20080620
  Transmission Date: 20081010
  Serious: Yes (Hospitalization, Other)
  Sender: FDA-Public Use
  Company Number: None

PATIENT
  Age: 69 Year
  Sex: Female
  Weight: 74.8435 kg

DRUGS (8)
  1. ALEVE (CAPLET) [Suspect]
     Indication: BACK PAIN
     Dosage: QD, ORAL
     Route: 048
     Dates: start: 20071201, end: 20080513
  2. UNCALCIUM PRODUCT (CALCIUM [CALCIUM] ) [Suspect]
     Indication: VITAMIN SUPPLEMENTATION
  3. DARVOCET [Concomitant]
  4. ZOLOFT [Concomitant]
  5. NEXIUM [Concomitant]
  6. SLEEP AID [Concomitant]
  7. SIMVASTATIN [Concomitant]
  8. VITAMINS [Concomitant]

REACTIONS (8)
  - BACK PAIN [None]
  - COELIAC DISEASE [None]
  - DIARRHOEA [None]
  - HYPERHIDROSIS [None]
  - MUSCLE SPASMS [None]
  - PANCREATIC CYST [None]
  - TREMOR [None]
  - WEIGHT DECREASED [None]
